FAERS Safety Report 21654653 (Version 1)
Quarter: 2022Q4

REPORT INFORMATION
  Report Type: Spontaneous
  Country: IT (occurrence: IT)
  Receive Date: 20221129
  Receipt Date: 20221129
  Transmission Date: 20230113
  Serious: Yes (Life-Threatening, Hospitalization)
  Sender: FDA-Public Use
  Company Number: None

PATIENT
  Age: 60 Year
  Sex: Female

DRUGS (6)
  1. CLONAZEPAM [Suspect]
     Active Substance: CLONAZEPAM
     Dosage: DOSAGE: 2 BOTTLES, FREQUENCY OF ADMINISTRATION: TOTAL (DEFINITELY RIVOTRIL 2 10 ML BOTTLES AT 2.5...
     Route: 048
     Dates: start: 20220827, end: 20220827
  2. VALPROIC ACID [Suspect]
     Active Substance: VALPROIC ACID
     Dosage: 300 MG X2?DAILY DOSE: 600 MILLIGRAM
  3. CITALOPRAM [Concomitant]
     Active Substance: CITALOPRAM HYDROBROMIDE
  4. QUETIAPINE [Concomitant]
     Active Substance: QUETIAPINE
     Dosage: 150 MG RP X2
  5. AMLODIPINE [Concomitant]
     Active Substance: AMLODIPINE BESYLATE
  6. PANTOPRAZOLE [Concomitant]
     Active Substance: PANTOPRAZOLE

REACTIONS (4)
  - Drug abuse [Recovered/Resolved with Sequelae]
  - Loss of consciousness [Recovered/Resolved]
  - Respiratory acidosis [Recovered/Resolved]
  - Bradypnoea [Recovered/Resolved]

NARRATIVE: CASE EVENT DATE: 20220827
